FAERS Safety Report 9943587 (Version 1)
Quarter: 2014Q1

REPORT INFORMATION
  Report Type: Report from Study
  Country: US (occurrence: US)
  Receive Date: 20140303
  Receipt Date: 20140303
  Transmission Date: 20141002
  Serious: No
  Sender: FDA-Public Use
  Company Number: US-ABBVIE-13P-163-1048365-00

PATIENT
  Age: 57 Year
  Sex: Male

DRUGS (6)
  1. HUMIRA [Suspect]
     Indication: CROHN^S DISEASE
     Dates: start: 20121204
  2. HYDROCODONE [Concomitant]
     Indication: PAIN
     Dosage: 10-325 MG X 3 TIMES DAILY
  3. ATENOLOL [Concomitant]
     Indication: BLOOD PRESSURE
     Dosage: 25 MG X 1/2 TABLET DAILY
  4. COZAAR [Concomitant]
     Indication: BLOOD PRESSURE
     Dosage: 50 MG X 1/2 TABLET DAILY
  5. SIMVASTATIN [Concomitant]
     Indication: BLOOD CHOLESTEROL
  6. XANAX [Concomitant]
     Indication: ANXIETY
     Dosage: .5 MG X 1-2 DAILY AS NEEDED

REACTIONS (6)
  - Injection site pain [Not Recovered/Not Resolved]
  - Drug dose omission [Not Recovered/Not Resolved]
  - Skin infection [Not Recovered/Not Resolved]
  - Rash pustular [Not Recovered/Not Resolved]
  - Neuropathy peripheral [Not Recovered/Not Resolved]
  - Hypotension [Not Recovered/Not Resolved]
